FAERS Safety Report 8366643-8 (Version None)
Quarter: 2012Q2

REPORT INFORMATION
  Report Type: 
  Country: None (occurrence: None)
  Receive Date: 20120517
  Receipt Date: 20120507
  Transmission Date: 20120825
  Serious: Yes (Hospitalization)
  Sender: FDA-Public Use
  Company Number: DE-JNJFOC-20120101736

PATIENT
  Sex: Female

DRUGS (2)
  1. PALIPERIDONE [Suspect]
     Route: 030
     Dates: start: 20110729
  2. PALIPERIDONE [Suspect]
     Indication: SCHIZOPHRENIA
     Route: 030
     Dates: start: 20111221

REACTIONS (1)
  - SCHIZOPHRENIA, PARANOID TYPE [None]
